FAERS Safety Report 4622826-1 (Version None)
Quarter: 2005Q1

REPORT INFORMATION
  Report Type: 
  Country: None (occurrence: None)
  Receive Date: 20050329
  Receipt Date: 20050329
  Transmission Date: 20050727
  Serious: No
  Sender: FDA-Public Use
  Company Number: None

PATIENT
  Age: 36 Year
  Sex: Female
  Weight: 60.782 kg

DRUGS (2)
  1. CITALOPRAM HYDROBROMIDE [Suspect]
     Indication: ANXIETY DISORDER
     Dosage: 2 1/2 TAB (50 MG) PO QD
     Route: 048
     Dates: end: 20050303
  2. CITALOPRAM HYDROBROMIDE [Suspect]
     Indication: DEPRESSION
     Dosage: 2 1/2 TAB (50 MG) PO QD
     Route: 048
     Dates: end: 20050303

REACTIONS (1)
  - SUICIDAL IDEATION [None]
